FAERS Safety Report 8775805 (Version 1)
Quarter: 2012Q4

REPORT INFORMATION
  Report Type: Report from Study
  Country: US (occurrence: US)
  Receive Date: 20120910
  Receipt Date: 20120910
  Transmission Date: 20130627
  Serious: Yes (Hospitalization)
  Sender: FDA-Public Use
  Company Number: US-ROCHE-1108914

PATIENT
  Age: 84 Year
  Sex: Male
  Weight: 66.98 kg

DRUGS (12)
  1. AVASTIN [Suspect]
     Indication: NON-SMALL CELL LUNG CANCER STAGE IV
     Route: 042
     Dates: start: 20100126, end: 20100406
  2. AVASTIN [Suspect]
     Route: 042
     Dates: start: 20100505, end: 20110425
  3. PEMETREXED [Suspect]
     Indication: NON-SMALL CELL LUNG CANCER STAGE IV
     Route: 042
     Dates: start: 20100126, end: 20100406
  4. PEMETREXED [Suspect]
     Route: 042
     Dates: start: 20100505, end: 20110425
  5. CARBOPLATIN [Suspect]
     Indication: NON-SMALL CELL LUNG CANCER STAGE IV
     Route: 042
     Dates: start: 20100126, end: 20100406
  6. COREG [Concomitant]
     Route: 065
     Dates: start: 20070902
  7. COLCHICINE [Concomitant]
     Route: 065
     Dates: start: 20090721
  8. DIGOXIN [Concomitant]
     Route: 065
     Dates: start: 20090902
  9. NORVASC [Concomitant]
     Route: 065
     Dates: start: 20100414
  10. PEPCID [Concomitant]
     Route: 065
     Dates: start: 20100126
  11. FOLIC ACID [Concomitant]
     Route: 065
     Dates: start: 20100112
  12. VITAMIN B12 [Concomitant]
     Route: 065
     Dates: start: 20100112

REACTIONS (3)
  - Cerebrovascular accident [Recovered/Resolved]
  - Hypothermia [Recovered/Resolved]
  - Diarrhoea [Recovered/Resolved]
